FAERS Safety Report 8369691-7 (Version None)
Quarter: 2012Q1

REPORT INFORMATION
  Report Type: 
  Country: None (occurrence: None)
  Receive Date: 20120323
  Receipt Date: 20110216
  Transmission Date: 20120608
  Serious: Yes (Disabling, Other)
  Sender: FDA-Public Use
  Company Number: 163-21880-11012244

PATIENT
  Age: 75 Year
  Sex: Female
  Weight: 71 kg

DRUGS (4)
  1. DECADRON [Concomitant]
  2. REVLIMID [Suspect]
     Indication: MULTIPLE MYELOMA
     Dosage: 15 MG, 1 IN 1 D, PO; 15 MG, DAILY ON DAYS 1-21 EVERY 28 DAYS, PO; 15 MG, 1 IN 1 D, PO
     Route: 048
     Dates: start: 20100901
  3. REVLIMID [Suspect]
     Indication: MULTIPLE MYELOMA
     Dosage: 15 MG, 1 IN 1 D, PO; 15 MG, DAILY ON DAYS 1-21 EVERY 28 DAYS, PO; 15 MG, 1 IN 1 D, PO
     Route: 048
     Dates: start: 20101206
  4. REVLIMID [Suspect]
     Indication: MULTIPLE MYELOMA
     Dosage: 15 MG, 1 IN 1 D, PO; 15 MG, DAILY ON DAYS 1-21 EVERY 28 DAYS, PO; 15 MG, 1 IN 1 D, PO
     Route: 048
     Dates: start: 20100401

REACTIONS (3)
  - PLASMACYTOMA [None]
  - BLINDNESS [None]
  - GASTROOESOPHAGEAL REFLUX DISEASE [None]
